FAERS Safety Report 9223118 (Version 2)
Quarter: 2013Q2

REPORT INFORMATION
  Report Type: Spontaneous
  Country: TR (occurrence: TR)
  Receive Date: 20130410
  Receipt Date: 20130624
  Transmission Date: 20140414
  Serious: Yes (Other)
  Sender: FDA-Public Use
  Company Number: TR-ROCHE-1210502

PATIENT
  Age: 21 Year
  Sex: Female

DRUGS (1)
  1. ACTILYSE [Suspect]
     Indication: CARDIAC VALVE REPLACEMENT COMPLICATION
     Dosage: 50 MG FOR FIRST 4 HOURS AND 25 MG SECOND DOSAGE
     Route: 065

REACTIONS (3)
  - Transient ischaemic attack [Recovered/Resolved]
  - Muscular weakness [Recovered/Resolved]
  - Exposure during pregnancy [Unknown]
